FAERS Safety Report 4579611-9 (Version None)
Quarter: 2005Q1

REPORT INFORMATION
  Report Type: 
  Country: None (occurrence: None)
  Receive Date: 20050210
  Receipt Date: 20050126
  Transmission Date: 20050727
  Serious: Yes (Death, Hospitalization)
  Sender: FDA-Public Use
  Company Number: 2004AL000505

PATIENT
  Age: 44 Year
  Sex: Male

DRUGS (5)
  1. PROPOXYPHENE HYDROCHLORIDE W/ACETAMINOPHEN TAB [Suspect]
     Dosage: PO
     Route: 048
  2. LORAZEPAM [Suspect]
     Dosage: PO
     Route: 048
  3. ETHANOL [Suspect]
     Dosage: PO
     Route: 048
  4. IBUPROFEN [Suspect]
     Dosage: PO
     Route: 048
  5. IBUPROFEN [Suspect]
     Dosage: PO
     Route: 048

REACTIONS (16)
  - ALANINE AMINOTRANSFERASE INCREASED [None]
  - APNOEA [None]
  - ASPARTATE AMINOTRANSFERASE INCREASED [None]
  - ATHEROSCLEROSIS [None]
  - BRAIN OEDEMA [None]
  - CARDIOMEGALY [None]
  - COMA [None]
  - GENERAL PHYSICAL HEALTH DETERIORATION [None]
  - HEART RATE INCREASED [None]
  - HEPATIC NECROSIS [None]
  - INTENTIONAL MISUSE [None]
  - PULSE ABSENT [None]
  - PUPIL FIXED [None]
  - PYREXIA [None]
  - SUBARACHNOID HAEMORRHAGE [None]
  - THERAPEUTIC AGENT TOXICITY [None]
